FAERS Safety Report 15288094 (Version 2)
Quarter: 2018Q3

REPORT INFORMATION
  Report Type: Report from Study
  Country: BR (occurrence: BR)
  Receive Date: 20180817
  Receipt Date: 20180907
  Transmission Date: 20181010
  Serious: Yes (Hospitalization)
  Sender: FDA-Public Use
  Company Number: BR-ROCHE-2171415

PATIENT
  Sex: Male
  Weight: 79 kg

DRUGS (3)
  1. RANITIDINE. [Concomitant]
     Active Substance: RANITIDINE
     Dosage: STARTED ON EITHER /APR/2018 OR /MAY/2018
     Route: 065
     Dates: start: 2018
  2. ESBRIET [Suspect]
     Active Substance: PIRFENIDONE
     Indication: IDIOPATHIC PULMONARY FIBROSIS
     Dosage: DOSAGE STARTED IN EITHER /APR/2018 OR /MAY/2018
     Route: 065
     Dates: start: 2018
  3. DOMPERIDONE [Concomitant]
     Active Substance: DOMPERIDONE
     Indication: PRODUCT USED FOR UNKNOWN INDICATION
     Route: 065
     Dates: start: 201804

REACTIONS (11)
  - Tremor [Recovering/Resolving]
  - Vomiting [Not Recovered/Not Resolved]
  - Dizziness [Recovering/Resolving]
  - Peripheral swelling [Not Recovered/Not Resolved]
  - Cough [Recovering/Resolving]
  - Chills [Recovering/Resolving]
  - Malaise [Recovering/Resolving]
  - Pneumonia [Recovering/Resolving]
  - Vomiting [Recovering/Resolving]
  - Palpitations [Recovering/Resolving]
  - Weight decreased [Not Recovered/Not Resolved]
